FAERS Safety Report 11471814 (Version 2)
Quarter: 2016Q3

REPORT INFORMATION
  Report Type: Spontaneous
  Country: US (occurrence: US)
  Receive Date: 20150908
  Receipt Date: 20160728
  Transmission Date: 20161109
  Serious: No
  Sender: FDA-Public Use
  Company Number: US-BAYER-2015-410013

PATIENT
  Age: 76 Year
  Sex: Male

DRUGS (16)
  1. GABAPENTIN. [Concomitant]
     Active Substance: GABAPENTIN
     Indication: PAIN
  2. CIPRO [Suspect]
     Active Substance: CIPROFLOXACIN HYDROCHLORIDE
     Indication: LOWER RESPIRATORY TRACT INFECTION
     Dosage: UNK
     Dates: start: 20071204, end: 20071214
  3. LEVAQUIN [Suspect]
     Active Substance: LEVOFLOXACIN
     Indication: LUNG INFECTION
     Dosage: UNK
     Dates: start: 20060310, end: 20060315
  4. LEVAQUIN [Suspect]
     Active Substance: LEVOFLOXACIN
     Indication: LUNG INFECTION
     Dosage: UNK
     Dates: start: 20071112, end: 20071119
  5. MONTELUKAST [Concomitant]
     Active Substance: MONTELUKAST SODIUM
     Indication: ASTHMA
  6. CIPRO [Suspect]
     Active Substance: CIPROFLOXACIN HYDROCHLORIDE
     Indication: LOWER RESPIRATORY TRACT INFECTION
     Dosage: UNK
     Dates: start: 20060721, end: 20060726
  7. LEVAQUIN [Suspect]
     Active Substance: LEVOFLOXACIN
     Indication: LUNG INFECTION
     Dosage: UNK
     Dates: start: 20070703, end: 20070710
  8. CIPRO [Suspect]
     Active Substance: CIPROFLOXACIN HYDROCHLORIDE
     Indication: PROSTATIC OPERATION
     Dosage: 500 MG, BID
     Dates: start: 20080613, end: 20080627
  9. CIPRO [Suspect]
     Active Substance: CIPROFLOXACIN HYDROCHLORIDE
     Indication: LOWER RESPIRATORY TRACT INFECTION
     Dosage: UNK
     Dates: start: 20071221, end: 20071226
  10. LEVAQUIN [Suspect]
     Active Substance: LEVOFLOXACIN
     Dosage: UNK
     Dates: start: 20060310, end: 20060315
  11. CIPRO [Suspect]
     Active Substance: CIPROFLOXACIN HYDROCHLORIDE
     Indication: LOWER RESPIRATORY TRACT INFECTION
     Dosage: UNK
     Dates: start: 20080307, end: 20080314
  12. CIPRO [Suspect]
     Active Substance: CIPROFLOXACIN HYDROCHLORIDE
     Indication: LOWER RESPIRATORY TRACT INFECTION
     Dosage: UNK
     Dates: start: 20080215, end: 20080229
  13. CIPROFLOXACIN. [Suspect]
     Active Substance: CIPROFLOXACIN
     Indication: LUNG INFECTION
  14. VERAPAMIL [Concomitant]
     Active Substance: VERAPAMIL HYDROCHLORIDE
     Indication: HYPERTENSION
  15. NAPROXEN. [Concomitant]
     Active Substance: NAPROXEN
     Indication: PAIN
  16. LUMIGAN [Concomitant]
     Active Substance: BIMATOPROST
     Indication: GLAUCOMA

REACTIONS (12)
  - Emotional disorder [None]
  - Pain [None]
  - Judgement impaired [None]
  - Hypoaesthesia [None]
  - Balance disorder [None]
  - Injury [None]
  - Memory impairment [None]
  - Neuropathy peripheral [None]
  - Emotional distress [None]
  - Gait disturbance [None]
  - Fall [None]
  - Insomnia [None]
